FAERS Safety Report 12488441 (Version 4)
Quarter: 2017Q1

REPORT INFORMATION
  Report Type: Report from Study
  Country: JP (occurrence: JP)
  Receive Date: 20160622
  Receipt Date: 20170327
  Transmission Date: 20170428
  Serious: Yes (Hospitalization)
  Sender: FDA-Public Use
  Company Number: JP-EISAI MEDICAL RESEARCH-EC-2016-017953

PATIENT
  Age: 67 Year
  Sex: Male
  Weight: 65 kg

DRUGS (2)
  1. HALAVEN [Suspect]
     Active Substance: ERIBULIN MESYLATE
     Route: 041
     Dates: start: 20160627
  2. HALAVEN [Suspect]
     Active Substance: ERIBULIN MESYLATE
     Indication: UNDIFFERENTIATED SARCOMA
     Route: 041
     Dates: start: 20160531, end: 20160607

REACTIONS (2)
  - Febrile neutropenia [Recovered/Resolved]
  - Leukopenia [Recovered/Resolved]

NARRATIVE: CASE EVENT DATE: 20160610
